FAERS Safety Report 5688827-X (Version None)
Quarter: 2008Q1

REPORT INFORMATION
  Report Type: 
  Country: None (occurrence: None)
  Receive Date: 20080331
  Receipt Date: 20020122
  Transmission Date: 20080703
  Serious: Yes (Death)
  Sender: FDA-Public Use
  Company Number: FR-ROCHE-305523

PATIENT
  Age: 68 Year
  Sex: Male
  Weight: 90 kg

DRUGS (2)
  1. LARIAM [Suspect]
     Indication: DRUG USE FOR UNKNOWN INDICATION
     Route: 048
     Dates: start: 20010806, end: 20010821
  2. BISOPROLOL FUMARATE AND HYDROCHLOROTHIAZIDE [Suspect]
     Indication: DRUG USE FOR UNKNOWN INDICATION
     Route: 048

REACTIONS (2)
  - DEATH [None]
  - MENTAL DISORDER [None]
